FAERS Safety Report 18225044 (Version 8)
Quarter: 2021Q2

REPORT INFORMATION
  Report Type: Report from Study
  Country: CH (occurrence: CH)
  Receive Date: 20200902
  Receipt Date: 20210419
  Transmission Date: 20210717
  Serious: Yes (Other)
  Sender: FDA-Public Use
  Company Number: CH-BEH-2020120617

PATIENT
  Age: 77 Year
  Sex: Male
  Weight: 80 kg

DRUGS (7)
  1. PRIVIGEN [Suspect]
     Active Substance: HUMAN IMMUNOGLOBULIN G
     Dosage: UNK
     Route: 042
     Dates: start: 20200724
  2. PRIVIGEN [Suspect]
     Active Substance: HUMAN IMMUNOGLOBULIN G
     Dosage: 40 GRAM
     Route: 042
  3. PRIVIGEN [Suspect]
     Active Substance: HUMAN IMMUNOGLOBULIN G
     Dosage: 40 GRAM
     Route: 042
  4. PRIVIGEN [Suspect]
     Active Substance: HUMAN IMMUNOGLOBULIN G
     Dosage: 40 GRAM
     Route: 042
     Dates: start: 202009
  5. AZITHROMYCIN MEPHA [Concomitant]
     Active Substance: AZITHROMYCIN ANHYDROUS
     Indication: INFECTION PROPHYLAXIS
     Dosage: 500 MILLIGRAM, TIW
     Dates: start: 2019
  6. PRIVIGEN [Suspect]
     Active Substance: HUMAN IMMUNOGLOBULIN G
     Dosage: 40 GRAM
     Route: 042
  7. PRIVIGEN [Suspect]
     Active Substance: HUMAN IMMUNOGLOBULIN G
     Indication: LYMPHOPROLIFERATIVE DISORDER
     Dosage: 40 GRAM
     Route: 042
     Dates: start: 201906

REACTIONS (19)
  - Fatigue [Recovered/Resolved]
  - Hypersomnia [Recovered/Resolved]
  - Poor venous access [Recovered/Resolved]
  - Lip swelling [Recovered/Resolved]
  - Eyelid oedema [Recovered/Resolved]
  - Product use in unapproved indication [Unknown]
  - Cerebrovascular accident [Recovered/Resolved]
  - Aphasia [Recovered/Resolved]
  - Blood test abnormal [Recovering/Resolving]
  - Hypertension [Recovered/Resolved]
  - Catheter site extravasation [Recovered/Resolved]
  - Eczema [Recovered/Resolved]
  - Lip oedema [Recovered/Resolved]
  - Hypersensitivity [Recovered/Resolved]
  - COVID-19 [Recovered/Resolved]
  - No adverse event [Unknown]
  - Hypertension [Not Recovered/Not Resolved]
  - Eye swelling [Recovered/Resolved]
  - Bradycardia [Not Recovered/Not Resolved]

NARRATIVE: CASE EVENT DATE: 202003
